FAERS Safety Report 10139613 (Version 3)
Quarter: 2014Q2

REPORT INFORMATION
  Report Type: Report from Study
  Country: US (occurrence: US)
  Receive Date: 20140429
  Receipt Date: 20140516
  Transmission Date: 20141212
  Serious: Yes (Hospitalization, Other)
  Sender: FDA-Public Use
  Company Number: US-ASTRAZENECA-2014SE15551

PATIENT
  Age: 20516 Day
  Sex: Female

DRUGS (25)
  1. AZD6140 [Suspect]
     Indication: CORONARY ARTERY DISEASE
     Route: 048
     Dates: start: 20120927, end: 20121205
  2. AZD6140 [Suspect]
     Indication: CORONARY ARTERY DISEASE
     Route: 048
     Dates: start: 20130204, end: 20140224
  3. ASA [Concomitant]
     Route: 048
     Dates: end: 20121211
  4. ASA [Concomitant]
     Route: 048
     Dates: start: 20121214, end: 20130117
  5. ASA [Concomitant]
     Route: 048
     Dates: start: 20130118, end: 20130118
  6. ASA [Concomitant]
     Route: 048
     Dates: start: 20130120, end: 20131030
  7. ASA [Concomitant]
     Route: 048
     Dates: start: 20131031, end: 20131031
  8. ASA [Concomitant]
     Route: 048
     Dates: start: 20131101, end: 20140226
  9. ASA [Concomitant]
     Route: 048
     Dates: start: 20140228, end: 20140317
  10. ASA [Concomitant]
     Route: 048
     Dates: start: 20140318, end: 20140318
  11. ASA [Concomitant]
     Route: 048
     Dates: start: 20140319, end: 20140414
  12. ASA [Concomitant]
     Route: 048
     Dates: start: 20140415, end: 20140415
  13. ASA [Concomitant]
     Route: 048
     Dates: start: 20140415, end: 20140415
  14. ASA [Concomitant]
     Route: 048
     Dates: start: 20140417
  15. ZETIA [Concomitant]
     Indication: HYPERCHOLESTEROLAEMIA
     Route: 048
     Dates: start: 20130425
  16. OMEPRAZOLE [Concomitant]
     Indication: GASTROOESOPHAGEAL REFLUX DISEASE
     Route: 048
     Dates: start: 20131102
  17. SERTRALINE [Concomitant]
     Indication: DEPRESSION
     Route: 048
     Dates: start: 20131102, end: 20140318
  18. LISINOPRIL [Concomitant]
     Indication: HYPERTENSION
     Route: 048
  19. NEURONTIN [Concomitant]
     Indication: MUSCLE SPASMS
     Route: 048
     Dates: start: 20131101, end: 20140320
  20. AMLODIPINE [Concomitant]
     Indication: HYPERTENSION
     Route: 048
     Dates: start: 20131101
  21. HYDROXYCHLOROQUINE [Concomitant]
     Indication: SYSTEMIC LUPUS ERYTHEMATOSUS
     Route: 048
     Dates: start: 20131101
  22. METOPROLOL [Concomitant]
     Indication: HYPERTENSION
     Route: 048
     Dates: start: 20131102
  23. GEMFIBROZIL [Concomitant]
     Indication: HYPERCHOLESTEROLAEMIA
     Route: 048
     Dates: start: 20130425
  24. CLARITIN [Concomitant]
     Indication: SEASONAL ALLERGY
     Route: 048
     Dates: start: 20131101
  25. ATORVASTATIN [Concomitant]
     Indication: HYPERCHOLESTEROLAEMIA
     Route: 048
     Dates: start: 20131101

REACTIONS (1)
  - Diverticulum intestinal haemorrhagic [Recovered/Resolved]
